FAERS Safety Report 19614873 (Version 1)
Quarter: 2021Q3

REPORT INFORMATION
  Report Type: Spontaneous
  Country: AT (occurrence: AT)
  Receive Date: 20210727
  Receipt Date: 20210727
  Transmission Date: 20211014
  Serious: Yes (Death, Other)
  Sender: FDA-Public Use
  Company Number: AT-MYLANLABS-2021M1045085

PATIENT
  Age: 75 Year
  Sex: Female

DRUGS (2)
  1. LETROZOLE. [Suspect]
     Active Substance: LETROZOLE
     Indication: BREAST CANCER
     Dosage: UNK
  2. PALBOCICLIB [Suspect]
     Active Substance: PALBOCICLIB
     Indication: BREAST CANCER
     Dosage: 125 MILLIGRAM
     Dates: start: 202010

REACTIONS (3)
  - Peritonitis bacterial [Not Recovered/Not Resolved]
  - Ascites [Not Recovered/Not Resolved]
  - Neoplasm progression [Fatal]
